FAERS Safety Report 9713793 (Version 1)
Quarter: 2013Q4

REPORT INFORMATION
  Report Type: Spontaneous
  Country: US (occurrence: None)
  Receive Date: 20131122
  Receipt Date: 20131122
  Transmission Date: 20140711
  Serious: Yes (Other)
  Sender: FDA-Public Use
  Company Number: SYM-2013-12728

PATIENT
  Sex: Female
  Weight: 56.7 kg

DRUGS (3)
  1. EFUDEX [Suspect]
     Indication: BASAL CELL CARCINOMA
     Dosage: DAILY, TOPICAL
     Route: 061
     Dates: start: 2012, end: 2013
  2. HYPERTENSION MEDICATION (ANTIHYPERTENSIVES) (NULL)? [Concomitant]
  3. STEROID (OTHER THERAPEUTIC PRODUCTS) (NULL)? [Concomitant]

REACTIONS (4)
  - Application site burn [None]
  - Oedema mouth [None]
  - Urticaria [None]
  - Pruritus [None]
